FAERS Safety Report 7713861-5 (Version None)
Quarter: 2011Q3

REPORT INFORMATION
  Report Type: 
  Country: None (occurrence: None)
  Receive Date: 20110826
  Receipt Date: 20110817
  Transmission Date: 20111222
  Serious: Yes (Hospitalization, Other)
  Sender: FDA-Public Use
  Company Number: US-ELI_LILLY_AND_COMPANY-US200612003450

PATIENT
  Sex: Male

DRUGS (6)
  1. NEXIUM [Concomitant]
     Dosage: UNK, UNKNOWN
  2. PERCOCET [Concomitant]
     Indication: PAIN
     Dosage: UNK, UNKNOWN
  3. HUMULIN 70/30 [Suspect]
     Dosage: UNK, OTHER
     Dates: start: 19860101
  4. HUMULIN 70/30 [Suspect]
     Indication: TYPE 2 DIABETES MELLITUS
     Dosage: 50 U, 2/D
     Dates: start: 19860101
  5. SOMA [Concomitant]
     Dosage: UNK, UNKNOWN
  6. NITROGLYCERIN [Concomitant]
     Dosage: UNK

REACTIONS (5)
  - EYE OPERATION [None]
  - CEREBROVASCULAR ACCIDENT [None]
  - OPHTHALMOPLEGIA [None]
  - VISUAL ACUITY REDUCED [None]
  - BLINDNESS UNILATERAL [None]
